FAERS Safety Report 7094325-1 (Version None)
Quarter: 2010Q4

REPORT INFORMATION
  Report Type: 
  Country: None (occurrence: None)
  Receive Date: 20101110
  Receipt Date: 20101102
  Transmission Date: 20110411
  Serious: Yes (Other)
  Sender: FDA-Public Use
  Company Number: FR-TEVA-249772ISR

PATIENT
  Age: 46 Year
  Sex: Male

DRUGS (7)
  1. ETOPOSIDE [Suspect]
     Indication: B-CELL LYMPHOMA
     Route: 042
  2. RITUXIMAB [Suspect]
     Indication: B-CELL LYMPHOMA
     Route: 042
  3. CARBOPLATIN [Suspect]
     Indication: B-CELL LYMPHOMA
     Route: 042
  4. IFOSFAMIDE [Suspect]
     Indication: B-CELL LYMPHOMA
     Route: 042
     Dates: start: 20100403, end: 20100403
  5. LEVOTHYROXINE [Concomitant]
  6. PRAVASTATIN [Concomitant]
  7. HEPARIN SODIUM [Concomitant]

REACTIONS (1)
  - ENCEPHALOPATHY [None]
